FAERS Safety Report 4286139-2 (Version None)
Quarter: 2004Q1

REPORT INFORMATION
  Report Type: 
  Country: None (occurrence: None)
  Receive Date: 20040203
  Receipt Date: 20040121
  Transmission Date: 20041129
  Serious: Yes (Life-Threatening, Hospitalization, Other)
  Sender: FDA-Public Use
  Company Number: 2003034521

PATIENT
  Age: 36 Year
  Sex: Male
  Weight: 87 kg

DRUGS (5)
  1. ZELDOX [Suspect]
     Indication: SCHIZOPHRENIA, PARANOID TYPE
     Dosage: 160 MG (BID), ORAL
     Route: 048
     Dates: start: 20030101, end: 20030723
  2. HALOPERIDOL [Suspect]
     Indication: ILL-DEFINED DISORDER
  3. FLUPENTIXOL DIHYDROCHLORIDE (FLUPENTIXOL DIHYDROCHLORIDE) [Concomitant]
  4. BIPERIDEN HYDROCHLORIDE TAB [Concomitant]
  5. CHLORPROTHIXENE HYDROCHLORIDE (CHLORPROTHIXENE HYDROCHLORIDE) [Concomitant]

REACTIONS (4)
  - ACUTE MYOCARDIAL INFARCTION [None]
  - COLD SWEAT [None]
  - CONFUSIONAL STATE [None]
  - ELECTROCARDIOGRAM ABNORMAL [None]
